FAERS Safety Report 6917107-7 (Version None)
Quarter: 2010Q3

REPORT INFORMATION
  Report Type: 
  Country: None (occurrence: None)
  Receive Date: 20100810
  Receipt Date: 20100803
  Transmission Date: 20110219
  Serious: Yes (Hospitalization)
  Sender: FDA-Public Use
  Company Number: B0668263A

PATIENT
  Sex: Male

DRUGS (11)
  1. AUGMENTIN '125' [Suspect]
     Route: 048
     Dates: start: 20100624, end: 20100701
  2. PREVISCAN [Suspect]
     Indication: PRODUCT USED FOR UNKNOWN INDICATION
     Route: 048
     Dates: start: 20090201, end: 20100707
  3. PERINDOPRIL ERBUMINE [Concomitant]
     Route: 065
  4. HEMIGOXINE [Concomitant]
     Route: 065
  5. LASIX [Concomitant]
     Route: 065
  6. SERETIDE DISKUS [Concomitant]
     Route: 065
  7. NITRODERM [Concomitant]
     Route: 065
  8. ALFUZOSIN HCL [Concomitant]
     Route: 065
  9. SERESTA [Concomitant]
     Route: 065
  10. EFFERALGAN [Concomitant]
     Route: 065
  11. KETEK [Concomitant]
     Route: 065

REACTIONS (6)
  - ANAEMIA [None]
  - ASTHENIA [None]
  - DRUG INTERACTION [None]
  - INTERNATIONAL NORMALISED RATIO INCREASED [None]
  - MELAENA [None]
  - RECTAL HAEMORRHAGE [None]
